FAERS Safety Report 5695306-2 (Version None)
Quarter: 2008Q2

REPORT INFORMATION
  Report Type: 
  Country: None (occurrence: None)
  Receive Date: 20080404
  Receipt Date: 20080325
  Transmission Date: 20081010
  Serious: Yes (Hospitalization, Other)
  Sender: FDA-Public Use
  Company Number: RO-PFIZER INC-2008027707

PATIENT
  Sex: Female
  Weight: 70 kg

DRUGS (8)
  1. SUTENT [Suspect]
     Indication: RENAL CELL CARCINOMA
     Route: 048
     Dates: start: 20080302, end: 20080319
  2. BETALOC [Concomitant]
     Route: 048
  3. PREDUCTAL [Concomitant]
     Route: 048
  4. NITROMINT [Concomitant]
     Route: 048
  5. OMEPRAZOLE [Concomitant]
     Route: 048
  6. AMARYL [Concomitant]
     Route: 048
  7. ACTOS [Concomitant]
     Route: 048
  8. ARCOXIA [Concomitant]
     Dosage: FREQ:OCCASIONALLY
     Route: 048

REACTIONS (4)
  - ANURIA [None]
  - BONE PAIN [None]
  - HYPERTENSION [None]
  - RECTAL TENESMUS [None]
